FAERS Safety Report 5443296-X (Version None)
Quarter: 2007Q3

REPORT INFORMATION
  Report Type: 
  Country: None (occurrence: None)
  Receive Date: 20070905
  Receipt Date: 20070823
  Transmission Date: 20080115
  Serious: Yes (Hospitalization)
  Sender: FDA-Public Use
  Company Number: DE-ELI_LILLY_AND_COMPANY-DE200708006266

PATIENT
  Age: 66 Year
  Sex: Female

DRUGS (10)
  1. FORTEO [Suspect]
     Indication: OSTEOPOROSIS
     Dosage: UNK, UNKNOWN
     Route: 058
  2. EUTHYROX [Concomitant]
     Indication: THYROID DISORDER
     Dosage: 125 MG, UNKNOWN
     Route: 048
  3. METOHEXAL [Concomitant]
     Indication: BLOOD PRESSURE
     Dosage: 100 UNK, UNKNOWN
     Route: 048
  4. OXYGESIC [Concomitant]
     Indication: PAIN
     Dosage: 10 MG, UNKNOWN
     Route: 065
  5. ULCOGANT [Concomitant]
     Dosage: UNK, UNKNOWN
     Route: 065
  6. VITAMIN D [Concomitant]
     Dosage: UNK, EVERY 14 DAYS
     Route: 065
  7. DIURETICS [Concomitant]
     Dosage: UNK, UNKNOWN
     Route: 065
     Dates: end: 20070101
  8. NEXIUM [Concomitant]
     Dosage: 40 MG, UNKNOWN
     Route: 065
     Dates: end: 20070101
  9. ANTIGOUT PREPARATIONS [Concomitant]
     Indication: GOUT
     Dosage: UNK, UNKNOWN
     Route: 065
     Dates: end: 20070101
  10. OSTEOPLUS [Concomitant]
     Dosage: UNK, UNKNOWN
     Route: 065
     Dates: end: 20070101

REACTIONS (3)
  - DYSGEUSIA [None]
  - GASTRIC ULCER [None]
  - TOOTH INFECTION [None]
